FAERS Safety Report 21064311 (Version 10)
Quarter: 2022Q4

REPORT INFORMATION
  Report Type: Report from Study
  Country: GB (occurrence: GB)
  Receive Date: 20220711
  Receipt Date: 20221115
  Transmission Date: 20230112
  Serious: Yes (Hospitalization, Other)
  Sender: FDA-Public Use
  Company Number: GB-ROCHE-3103404

PATIENT
  Age: 78 Year
  Sex: Male
  Weight: 79.2 kg

DRUGS (24)
  1. BEVACIZUMAB [Suspect]
     Active Substance: BEVACIZUMAB
     Indication: Hepatocellular carcinoma
     Dosage: 1100 MG
     Route: 065
     Dates: start: 20211012
  2. ATEZOLIZUMAB [Suspect]
     Active Substance: ATEZOLIZUMAB
     Indication: Hepatocellular carcinoma
     Dosage: 1200 MG, EVERY 3 WEEKS START DATE OF MOST RECENT DOSE OF STUDY DRUG PRIOR TO AE ON 05/APR/2022
     Route: 041
     Dates: start: 20211012
  3. ACYCLOVIR [Concomitant]
     Active Substance: ACYCLOVIR
     Dosage: 740 MG, 3X/DAY
     Route: 065
     Dates: start: 20220703, end: 20220708
  4. CALCIUM CARBONATE\CHOLECALCIFEROL [Concomitant]
     Active Substance: CALCIUM CARBONATE\CHOLECALCIFEROL
     Dosage: UNK UNK, 2X/DAY
     Route: 065
  5. AMLODIPINE [Concomitant]
     Active Substance: AMLODIPINE BESYLATE
     Dosage: UNK, 1X/DAY
     Route: 065
     Dates: start: 202106
  6. CLARITHROMYCIN [Concomitant]
     Active Substance: CLARITHROMYCIN
     Dosage: UNK, 2X/DAY
     Route: 065
     Dates: start: 20220630, end: 20220707
  7. COD LIVER OIL [Concomitant]
     Active Substance: COD LIVER OIL
     Dosage: UNK UNK, 1X/DAY
     Route: 065
  8. COTRIMOXAZOLE [Concomitant]
     Active Substance: SULFAMETHOXAZOLE\TRIMETHOPRIM
     Dosage: 2400 MG, 4X/DAY
     Route: 065
     Dates: start: 20220708
  9. DEXAMETHASONE [Concomitant]
     Active Substance: DEXAMETHASONE
     Dosage: 20 MG, 1X/DAY
     Route: 065
     Dates: start: 20220613, end: 20220623
  10. ENOXAPARIN [Concomitant]
     Active Substance: ENOXAPARIN
     Dosage: 120 MG
     Route: 065
     Dates: start: 20220623, end: 20220629
  11. FLUCONAZOLE [Concomitant]
     Active Substance: FLUCONAZOLE
     Indication: Prophylaxis
     Dosage: 100 MG, 1X/DAY
     Route: 065
     Dates: start: 20220623
  12. FUROSEMIDE [Concomitant]
     Active Substance: FUROSEMIDE
     Dosage: 40 MG, 1X/DAY
     Route: 065
     Dates: start: 20220706, end: 20220714
  13. FUROSEMIDE [Concomitant]
     Active Substance: FUROSEMIDE
     Dosage: 40 MG
     Route: 065
     Dates: start: 20220722
  14. LANSOPRAZOLE [Concomitant]
     Active Substance: LANSOPRAZOLE
     Dosage: UNK, 1X/DAY
     Route: 065
  15. LISINOPRIL [Concomitant]
     Active Substance: LISINOPRIL
     Dosage: UNK, 1X/DAY
     Route: 065
     Dates: start: 202106
  16. POLYETHYLENE GLYCOLS [Concomitant]
     Active Substance: POLYETHYLENE GLYCOLS
     Dosage: UNK, 3X/DAY
     Route: 065
     Dates: start: 20220625, end: 20220628
  17. POLYETHYLENE GLYCOLS [Concomitant]
     Active Substance: POLYETHYLENE GLYCOLS
     Dosage: 2 TABLETS
     Route: 065
     Dates: start: 20220703, end: 20220706
  18. MEROPENEM [Concomitant]
     Active Substance: MEROPENEM
     Dosage: 1 G, 3X/DAY
     Route: 065
     Dates: start: 20220703, end: 20220708
  19. METHYLPREDNISOLONE SODIUM SUCCINATE [Concomitant]
     Active Substance: METHYLPREDNISOLONE SODIUM SUCCINATE
     Dosage: 150 MG, 1X/DAY
     Route: 065
     Dates: start: 20220705, end: 20220712
  20. MORPHINE SULFATE [Concomitant]
     Active Substance: MORPHINE SULFATE
     Indication: Pain
     Dosage: 5 MG, AS NEEDED
     Route: 065
     Dates: start: 20220717
  21. NYSTATIN [Concomitant]
     Active Substance: NYSTATIN
     Dosage: 10000 DF, 4X/DAY
     Route: 065
     Dates: start: 20220625
  22. ACETAMINOPHEN [Concomitant]
     Active Substance: ACETAMINOPHEN
     Indication: Pain
     Dosage: UNK UNK, AS NEEDED
     Route: 065
  23. VALACYCLOVIR HYDROCHLORIDE [Concomitant]
     Active Substance: VALACYCLOVIR HYDROCHLORIDE
     Dosage: UNK, 3X/DAY
     Route: 065
     Dates: start: 20220630, end: 20220703
  24. POTASSIUM [Concomitant]
     Active Substance: POTASSIUM

REACTIONS (38)
  - Diarrhoea [Recovered/Resolved]
  - Hyponatraemia [Not Recovered/Not Resolved]
  - Pyrexia [Recovered/Resolved]
  - Platelet count decreased [Not Recovered/Not Resolved]
  - Decreased appetite [Not Recovered/Not Resolved]
  - Diarrhoea [Recovered/Resolved]
  - Hypophagia [Not Recovered/Not Resolved]
  - Pulmonary embolism [Not Recovered/Not Resolved]
  - Oral candidiasis [Not Recovered/Not Resolved]
  - Blood albumin decreased [Not Recovered/Not Resolved]
  - Pneumocystis jirovecii pneumonia [Not Recovered/Not Resolved]
  - Herpes simplex [Not Recovered/Not Resolved]
  - Confusional state [Not Recovered/Not Resolved]
  - Tachycardia [Not Recovered/Not Resolved]
  - Agitation [Not Recovered/Not Resolved]
  - Wheezing [Not Recovered/Not Resolved]
  - Tachypnoea [Not Recovered/Not Resolved]
  - Hypoxia [Not Recovered/Not Resolved]
  - C-reactive protein increased [Recovered/Resolved]
  - Thrombocytopenia [Not Recovered/Not Resolved]
  - Acute kidney injury [Recovered/Resolved]
  - Pneumonia viral [Not Recovered/Not Resolved]
  - Hypothermia [Recovered/Resolved]
  - Oedema peripheral [Not Recovered/Not Resolved]
  - Fall [Recovered/Resolved]
  - COVID-19 [Not Recovered/Not Resolved]
  - Blood potassium decreased [Recovered/Resolved]
  - Contusion [Not Recovered/Not Resolved]
  - Platelet count decreased [Not Recovered/Not Resolved]
  - Dyspnoea [Not Recovered/Not Resolved]
  - Sepsis [Recovered/Resolved]
  - Fatigue [Not Recovered/Not Resolved]
  - Lethargy [Not Recovered/Not Resolved]
  - Chills [Recovered/Resolved]
  - Oropharyngeal pain [Recovered/Resolved]
  - Peripheral swelling [Not Recovered/Not Resolved]
  - Arthralgia [Not Recovered/Not Resolved]
  - Cough [Not Recovered/Not Resolved]

NARRATIVE: CASE EVENT DATE: 20211223
